FAERS Safety Report 9463264 (Version 1)
Quarter: 2013Q3

REPORT INFORMATION
  Report Type: Report from Study
  Country: CA (occurrence: CA)
  Receive Date: 20130819
  Receipt Date: 20130819
  Transmission Date: 20140515
  Serious: Yes (Other)
  Sender: FDA-Public Use
  Company Number: CA-ROCHE-1262448

PATIENT
  Sex: Male

DRUGS (10)
  1. PEGASYS [Suspect]
     Indication: HEPATITIS C
     Route: 065
     Dates: start: 20121029, end: 20130811
  2. RIBAVIRIN [Suspect]
     Indication: HEPATITIS C
     Route: 065
     Dates: start: 20121029, end: 20130811
  3. XENICAL [Suspect]
     Indication: PRODUCT USED FOR UNKNOWN INDICATION
     Route: 065
  4. VICTRELIS [Suspect]
     Indication: PRODUCT USED FOR UNKNOWN INDICATION
     Route: 065
  5. METFORMIN [Concomitant]
     Dosage: 1/2 TAB (NOS)
     Route: 065
  6. AMLODIPINE [Concomitant]
     Route: 065
  7. IRBESARTAN [Concomitant]
     Dosage: 150 MG/12.5 (NOS)
     Route: 065
  8. ASA (ACETYLSALICYLIC ACID) [Concomitant]
     Route: 065
  9. OMEGA 3 [Concomitant]
  10. ALEVE [Concomitant]
     Route: 065

REACTIONS (2)
  - Nerve injury [Not Recovered/Not Resolved]
  - Slow speech [Not Recovered/Not Resolved]
